FAERS Safety Report 7061471-8 (Version None)
Quarter: 2010Q4

REPORT INFORMATION
  Report Type: 
  Country: None (occurrence: None)
  Receive Date: 20101026
  Receipt Date: 20101011
  Transmission Date: 20110411
  Serious: Yes (Hospitalization, Disabling)
  Sender: FDA-Public Use
  Company Number: GB-BRACCO-000305

PATIENT
  Age: 57 Year
  Sex: Male

DRUGS (3)
  1. PROHANCE [Suspect]
     Indication: BRAIN ABSCESS
  2. PROHANCE [Suspect]
     Indication: NUCLEAR MAGNETIC RESONANCE IMAGING
  3. CONTRAST MEDIA [Suspect]
     Indication: DIAGNOSTIC PROCEDURE

REACTIONS (1)
  - NEPHROGENIC SYSTEMIC FIBROSIS [None]
